FAERS Safety Report 5957732-3 (Version None)
Quarter: 2008Q4

REPORT INFORMATION
  Report Type: 
  Country: None (occurrence: None)
  Receive Date: 20081119
  Receipt Date: 20081112
  Transmission Date: 20090506
  Serious: Yes (Life-Threatening, Hospitalization)
  Sender: FDA-Public Use
  Company Number: IT-JNJFOC-20081102913

PATIENT
  Age: 52 Year
  Sex: Female

DRUGS (8)
  1. REMICADE [Suspect]
     Indication: PSORIATIC ARTHROPATHY
     Route: 042
  2. MEPRAL [Concomitant]
     Route: 048
  3. MEDROL [Concomitant]
     Route: 048
  4. APPROVEL [Concomitant]
     Route: 048
  5. GLUCOPHAGE [Concomitant]
     Route: 048
  6. ASPIRIN [Concomitant]
     Route: 048
  7. NORVASC [Concomitant]
     Route: 048
  8. TRIATEC [Concomitant]
     Route: 048

REACTIONS (4)
  - BACK PAIN [None]
  - CHEST PAIN [None]
  - COMA [None]
  - INFUSION RELATED REACTION [None]
